FAERS Safety Report 25504776 (Version 1)
Quarter: 2025Q3

REPORT INFORMATION
  Report Type: Spontaneous
  Country: US (occurrence: None)
  Receive Date: 20250701
  Receipt Date: 20250701
  Transmission Date: 20251021
  Serious: Yes (Other)
  Sender: FDA-CTU
  Company Number: None

PATIENT
  Age: 54 Year
  Sex: Male
  Weight: 83.91 kg

DRUGS (4)
  1. GAVILYTE-N [Suspect]
     Active Substance: POLYETHYLENE GLYCOL 3350\POTASSIUM CHLORIDE\SODIUM BICARBONATE\SODIUM CHLORIDE
     Indication: Colonoscopy
     Dates: start: 20250417, end: 20250417
  2. DIETARY SUPPLEMENT [Concomitant]
     Active Substance: DIETARY SUPPLEMENT
  3. Reproductive herbals [Concomitant]
  4. Centrum 50 [Concomitant]

REACTIONS (3)
  - Bowel preparation [None]
  - Gastric ulcer [None]
  - Intestinal ulcer [None]

NARRATIVE: CASE EVENT DATE: 20250417
